FAERS Safety Report 24002325 (Version 1)
Quarter: 2024Q2

REPORT INFORMATION
  Report Type: Spontaneous
  Country: AU (occurrence: AU)
  Receive Date: 20240622
  Receipt Date: 20240622
  Transmission Date: 20240715
  Serious: Yes (Death)
  Sender: FDA-Public Use
  Company Number: AU-IPCA LABORATORIES LIMITED-IPC2024-AU-001123

PATIENT
  Age: 54 Year
  Sex: Female

DRUGS (3)
  1. LAMOTRIGINE [Suspect]
     Active Substance: LAMOTRIGINE
     Indication: Product used for unknown indication
     Dosage: 5 G
     Route: 065
  2. QUETIAPINE FUMARATE [Suspect]
     Active Substance: QUETIAPINE FUMARATE
     Indication: Product used for unknown indication
     Dosage: 3 G
     Route: 065
  3. ZOPICLONE [Suspect]
     Active Substance: ZOPICLONE
     Indication: Product used for unknown indication
     Dosage: 75 MG
     Route: 065

REACTIONS (6)
  - Cardiac arrest [Fatal]
  - Distributive shock [Fatal]
  - Electrocardiogram abnormal [Fatal]
  - Hypotension [Fatal]
  - Intentional overdose [Fatal]
  - Toxicity to various agents [Fatal]
